FAERS Safety Report 9523907 (Version 1)
Quarter: 2013Q1

REPORT INFORMATION
  Report Type: Spontaneous
  Country: US (occurrence: None)
  Receive Date: 20130305
  Receipt Date: 20130305
  Transmission Date: 20140127
  Serious: Yes (Hospitalization, Disabling, Other)
  Sender: FDA-Public Use
  Company Number: 163-21880-11122178

PATIENT
  Age: 72 Year
  Sex: Male
  Weight: 114.76 kg

DRUGS (4)
  1. REVLIMID (LENALIDOMIDE) (25 MILLIGRAM, CAPSULES) [Suspect]
     Indication: PLASMA CELL MYELOMA
     Dosage: 25 MG, QD DAYS 1-21, PO
     Route: 048
     Dates: start: 20111103, end: 20111228
  2. REVLIMID (LENALIDOMIDE) (25 MILLIGRAM, CAPSULES) [Suspect]
     Indication: MYELODYSPLASTIC SYNDROME
     Dosage: 25 MG, QD DAYS 1-21, PO
     Route: 048
     Dates: start: 20111103, end: 20111228
  3. VIDAZA (AZACITIDINE) (UNKNOWN) [Concomitant]
  4. BLOOD TRANSFUSIONS (BLOOD AND RELATED PRODUCTS) [Concomitant]

REACTIONS (9)
  - Anaemia [None]
  - Sinusitis [None]
  - Nasal congestion [None]
  - Ear congestion [None]
  - Dermatitis allergic [None]
  - Rash pruritic [None]
  - Skin exfoliation [None]
  - Dry skin [None]
  - Alopecia [None]
